FAERS Safety Report 6213374-6 (Version None)
Quarter: 2009Q2

REPORT INFORMATION
  Report Type: 
  Country: None (occurrence: None)
  Receive Date: 20090603
  Receipt Date: 20090528
  Transmission Date: 20091009
  Serious: No
  Sender: FDA-Public Use
  Company Number: JP-EISAI INC.-E2090-00749-SPO-JP

PATIENT
  Age: 18 Month
  Sex: Male

DRUGS (8)
  1. EXCEGRAN [Suspect]
     Dosage: UNKNOWN
     Route: 065
  2. EXCEGRAN [Suspect]
  3. POTASSIUM BROMIDE [Concomitant]
  4. POTASSIUM BROMIDE [Concomitant]
  5. TERNELIN [Concomitant]
  6. TERNELIN [Concomitant]
  7. VALPROIC ACID [Concomitant]
  8. VALPROIC ACID [Concomitant]

REACTIONS (1)
  - NEUROLEPTIC MALIGNANT SYNDROME [None]
